FAERS Safety Report 15624131 (Version 3)
Quarter: 2018Q4

REPORT INFORMATION
  Report Type: Spontaneous
  Country: US (occurrence: US)
  Receive Date: 20181116
  Receipt Date: 20181127
  Transmission Date: 20190205
  Serious: No
  Sender: FDA-Public Use
  Company Number: US-BIOGEN-2018BI00656967

PATIENT
  Age: 29 Year
  Sex: Male
  Weight: 88.53 kg

DRUGS (3)
  1. TECFIDERA [Suspect]
     Active Substance: DIMETHYL FUMARATE
     Indication: MULTIPLE SCLEROSIS
     Route: 048
     Dates: start: 20181105
  2. VITAMIN D [Concomitant]
     Active Substance: CHOLECALCIFEROL
     Route: 065
  3. TECFIDERA [Suspect]
     Active Substance: DIMETHYL FUMARATE
     Route: 048

REACTIONS (8)
  - Pruritus [Recovered/Resolved]
  - Feeling abnormal [Unknown]
  - Hot flush [Recovered/Resolved]
  - Decreased interest [Unknown]
  - Hypoacusis [Not Recovered/Not Resolved]
  - Flushing [Recovered/Resolved]
  - Nausea [Unknown]
  - Infection [Unknown]

NARRATIVE: CASE EVENT DATE: 20181105
